FAERS Safety Report 25580973 (Version 3)
Quarter: 2025Q3

REPORT INFORMATION
  Report Type: Spontaneous
  Country: US (occurrence: US)
  Receive Date: 20250718
  Receipt Date: 20250718
  Transmission Date: 20251020
  Serious: No
  Sender: NOVO NORDISK
  Company Number: US-NOVOPROD-1453394

PATIENT
  Age: 57 Year
  Sex: Female

DRUGS (6)
  1. WEGOVY [Suspect]
     Active Substance: SEMAGLUTIDE
     Indication: Overweight
  2. WEGOVY [Suspect]
     Active Substance: SEMAGLUTIDE
     Indication: Transient ischaemic attack
  3. WEGOVY [Suspect]
     Active Substance: SEMAGLUTIDE
     Indication: Transient ischaemic attack
  4. WEGOVY [Suspect]
     Active Substance: SEMAGLUTIDE
     Indication: Overweight
  5. WEGOVY [Suspect]
     Active Substance: SEMAGLUTIDE
     Indication: Transient ischaemic attack
  6. WEGOVY [Suspect]
     Active Substance: SEMAGLUTIDE
     Indication: Overweight
     Dates: start: 2024

REACTIONS (5)
  - Hunger [Unknown]
  - Injection site discharge [Unknown]
  - Product outer packaging issue [Unknown]
  - Product quality issue [Unknown]
  - Device issue [Unknown]
